FAERS Safety Report 4809429-0 (Version None)
Quarter: 2005Q4

REPORT INFORMATION
  Report Type: 
  Country: None (occurrence: None)
  Receive Date: 20051021
  Receipt Date: 20051013
  Transmission Date: 20060501
  Serious: Yes (Hospitalization, Disabling, Other)
  Sender: FDA-Public Use
  Company Number: 2005118106

PATIENT
  Sex: Female
  Weight: 71.6683 kg

DRUGS (3)
  1. NARDIL [Suspect]
     Indication: PANIC ATTACK
     Dosage: 30 MG (15 MG, 2 IN 1 D), ORAL
     Route: 048
     Dates: start: 19860101
  2. SYNTHROID [Suspect]
     Indication: THYROID DISORDER
     Dosage: (150 MCG)
  3. CENTRUM (MINERALS NOS, VITAMINS NOS) [Concomitant]

REACTIONS (20)
  - ACTIVITIES OF DAILY LIVING IMPAIRED [None]
  - BLOOD GLUCOSE DECREASED [None]
  - BLOOD PRESSURE INCREASED [None]
  - BONE DISORDER [None]
  - CONDITION AGGRAVATED [None]
  - CONVULSION [None]
  - CRYING [None]
  - DIZZINESS [None]
  - DRUG INEFFECTIVE [None]
  - DRUG INTERACTION [None]
  - GAIT DISTURBANCE [None]
  - INCORRECT DOSE ADMINISTERED [None]
  - MALAISE [None]
  - MUSCLE DISORDER [None]
  - NERVOUSNESS [None]
  - PALPITATIONS [None]
  - PANIC DISORDER WITH AGORAPHOBIA [None]
  - PHARMACEUTICAL PRODUCT COMPLAINT [None]
  - TONIC CLONIC MOVEMENTS [None]
  - TREMOR [None]
